FAERS Safety Report 5866791-8 (Version None)
Quarter: 2008Q3

REPORT INFORMATION
  Report Type: 
  Country: None (occurrence: None)
  Receive Date: 20080902
  Receipt Date: 20080822
  Transmission Date: 20090109
  Serious: Yes (Hospitalization)
  Sender: FDA-Public Use
  Company Number: PHHO2008NO10225

PATIENT
  Sex: Male
  Weight: 70 kg

DRUGS (2)
  1. RAD 666 RAD++PTR [Suspect]
     Indication: HEART TRANSPLANT
     Dosage: 1.5 MG, DAILY
     Route: 048
     Dates: start: 20071005
  2. SANDIMMUNE [Suspect]
     Indication: HEART TRANSPLANT
     Dosage: 75 MG, BID
     Route: 048
     Dates: start: 20000828

REACTIONS (2)
  - DEEP VEIN THROMBOSIS [None]
  - PAIN IN EXTREMITY [None]
